FAERS Safety Report 12101146 (Version 1)
Quarter: 2016Q1

REPORT INFORMATION
  Report Type: Spontaneous
  Country: AT (occurrence: AT)
  Receive Date: 20160222
  Receipt Date: 20160222
  Transmission Date: 20160526
  Serious: Yes (Other)
  Sender: FDA-Public Use
  Company Number: AT-BRISTOL-MYERS SQUIBB COMPANY-BMS-2016-012639

PATIENT
  Age: 20 Year
  Sex: Female

DRUGS (26)
  1. ABILIFY [Interacting]
     Active Substance: ARIPIPRAZOLE
     Dosage: 20 MG, UNK
     Route: 065
     Dates: start: 20151125, end: 20151207
  2. ZOLPIDEM [Concomitant]
     Active Substance: ZOLPIDEM\ZOLPIDEM TARTRATE
     Indication: PRODUCT USED FOR UNKNOWN INDICATION
     Dosage: 10 MG, UNK
     Route: 065
     Dates: start: 20151105, end: 20151113
  3. ZOLPIDEM [Concomitant]
     Active Substance: ZOLPIDEM\ZOLPIDEM TARTRATE
     Dosage: 20 MG, UNK
     Route: 065
     Dates: start: 20151114
  4. PSYCHOPAX [Concomitant]
     Active Substance: DIAZEPAM
     Dosage: 20 MG, UNK
     Route: 065
     Dates: start: 20151214
  5. ABILIFY [Interacting]
     Active Substance: ARIPIPRAZOLE
     Dosage: 10 MG, UNK
     Route: 065
     Dates: start: 20151208, end: 20151209
  6. NOZINAN                            /00038601/ [Interacting]
     Active Substance: LEVOMEPROMAZINE
     Dosage: 100 MG, UNK
     Route: 065
     Dates: start: 20151207, end: 20151207
  7. LAMOTRIGIN [Concomitant]
     Active Substance: LAMOTRIGINE
     Dosage: 200 MG, UNK
     Route: 065
     Dates: start: 20151119
  8. PSYCHOPAX [Concomitant]
     Active Substance: DIAZEPAM
     Dosage: 20 MG, UNK
     Route: 065
     Dates: start: 20151206, end: 20151207
  9. FLUCTINE [Interacting]
     Active Substance: FLUOXETINE HYDROCHLORIDE
     Dosage: 40 MG, UNK
     Route: 065
     Dates: start: 20151208, end: 20151210
  10. CYMBALTA [Concomitant]
     Active Substance: DULOXETINE HYDROCHLORIDE
     Indication: PRODUCT USED FOR UNKNOWN INDICATION
     Dosage: 60 MG, UNK
     Route: 065
     Dates: start: 20151220
  11. FLUCTINE [Interacting]
     Active Substance: FLUOXETINE HYDROCHLORIDE
     Indication: PRODUCT USED FOR UNKNOWN INDICATION
     Dosage: 80 MG, UNK
     Route: 065
     Dates: end: 20151207
  12. TRITTICO [Concomitant]
     Active Substance: TRAZODONE HYDROCHLORIDE
     Indication: PRODUCT USED FOR UNKNOWN INDICATION
     Dosage: 150 MG, UNK
     Route: 065
     Dates: start: 20151112, end: 20151119
  13. TRITTICO [Concomitant]
     Active Substance: TRAZODONE HYDROCHLORIDE
     Dosage: 250 MG, UNK
     Route: 065
     Dates: start: 20151120, end: 20151129
  14. PSYCHOPAX [Concomitant]
     Active Substance: DIAZEPAM
     Dosage: 10 MG, UNK
     Route: 065
     Dates: start: 20151130, end: 20151205
  15. ABILIFY [Suspect]
     Active Substance: ARIPIPRAZOLE
     Indication: PRODUCT USED FOR UNKNOWN INDICATION
     Dosage: 10 MG, UNK
     Route: 065
     Dates: start: 20151117, end: 20151124
  16. ABILIFY [Interacting]
     Active Substance: ARIPIPRAZOLE
     Dosage: 20 MG, UNK
     Route: 065
     Dates: start: 20151210, end: 20151225
  17. FLUCTINE [Interacting]
     Active Substance: FLUOXETINE HYDROCHLORIDE
     Dosage: UNK MG, UNK
     Route: 065
     Dates: end: 20151220
  18. FLUCTINE [Interacting]
     Active Substance: FLUOXETINE HYDROCHLORIDE
     Dosage: 60 MG, UNK
     Route: 065
     Dates: end: 20151211
  19. LAMOTRIGIN [Concomitant]
     Active Substance: LAMOTRIGINE
     Indication: PRODUCT USED FOR UNKNOWN INDICATION
     Dosage: 100 MG, UNK
     Route: 065
     Dates: start: 20151014, end: 20151118
  20. ABILIFY [Interacting]
     Active Substance: ARIPIPRAZOLE
     Dosage: 30 MG, UNK
     Route: 065
     Dates: start: 20151226
  21. PSYCHOPAX [Concomitant]
     Active Substance: DIAZEPAM
     Indication: PRODUCT USED FOR UNKNOWN INDICATION
     Dosage: 15 MG, UNK
     Route: 065
     Dates: start: 20151117, end: 20151129
  22. PSYCHOPAX [Concomitant]
     Active Substance: DIAZEPAM
     Dosage: 30 MG, UNK
     Route: 065
     Dates: start: 20151208, end: 20151213
  23. TRITTICO [Concomitant]
     Active Substance: TRAZODONE HYDROCHLORIDE
     Dosage: 200 MG, UNK
     Route: 065
     Dates: start: 20151130, end: 20151220
  24. TRITTICO [Concomitant]
     Active Substance: TRAZODONE HYDROCHLORIDE
     Dosage: 300 MG, UNK
     Route: 065
     Dates: start: 20151221
  25. NOZINAN                            /00038601/ [Interacting]
     Active Substance: LEVOMEPROMAZINE
     Indication: PRODUCT USED FOR UNKNOWN INDICATION
     Dosage: 100 MG, UNK
     Route: 065
     Dates: start: 20151014, end: 20151124
  26. NOZINAN                            /00038601/ [Interacting]
     Active Substance: LEVOMEPROMAZINE
     Dosage: 200 MG, UNK
     Route: 065
     Dates: start: 20151124, end: 20151206

REACTIONS (2)
  - Drug interaction [Unknown]
  - Pleurothotonus [Recovered/Resolved]

NARRATIVE: CASE EVENT DATE: 20151207
